FAERS Safety Report 12537352 (Version 2)
Quarter: 2016Q3

REPORT INFORMATION
  Report Type: Spontaneous
  Country: US (occurrence: US)
  Receive Date: 20160707
  Receipt Date: 20160725
  Transmission Date: 20161109
  Serious: Yes (Hospitalization, Other)
  Sender: FDA-Public Use
  Company Number: US-MEDA-2016070007

PATIENT
  Sex: Female
  Weight: 75 kg

DRUGS (4)
  1. FELBATOL [Suspect]
     Active Substance: FELBAMATE
     Indication: SEIZURE
     Dosage: 2 TABLETS IN MORNING, 2 AND HALF TABLETS AT NIGHT
     Route: 048
  2. DEPAKOTE [Concomitant]
     Active Substance: DIVALPROEX SODIUM
     Indication: SEIZURE
  3. DILANTIN [Concomitant]
     Active Substance: PHENYTOIN
     Indication: SEIZURE
  4. AMBIEN [Concomitant]
     Active Substance: ZOLPIDEM TARTRATE
     Indication: INSOMNIA

REACTIONS (14)
  - Feeding disorder [Unknown]
  - Abdominal pain upper [Unknown]
  - Procedural pain [Unknown]
  - Wrist fracture [Unknown]
  - Lumbar vertebral fracture [Unknown]
  - Epilepsy [Not Recovered/Not Resolved]
  - Back pain [Unknown]
  - Body height decreased [Not Recovered/Not Resolved]
  - Asthma [Unknown]
  - Adrenal mass [Unknown]
  - Dizziness [Unknown]
  - Cholelithiasis [Unknown]
  - Osteoporosis [Unknown]
  - Fall [Unknown]

NARRATIVE: CASE EVENT DATE: 2001
